FAERS Safety Report 14781785 (Version 1)
Quarter: 2018Q2

REPORT INFORMATION
  Report Type: Spontaneous
  Country: GB (occurrence: GB)
  Receive Date: 20180420
  Receipt Date: 20180420
  Transmission Date: 20180711
  Serious: Yes (Other)
  Sender: FDA-Public Use
  Company Number: GB-TEVA-2018-GB-883481

PATIENT
  Age: 2 Year
  Sex: Female
  Weight: 10 kg

DRUGS (10)
  1. PROTOPIC [Concomitant]
     Active Substance: TACROLIMUS
     Dosage: APPLY AS DIRECTED BY HOSPITAL.
     Dates: start: 20180125, end: 20180205
  2. PREDNISOLONE. [Concomitant]
     Active Substance: PREDNISOLONE
     Dosage: 2 DOSAGE FORMS DAILY;
     Dates: start: 20171201, end: 20171206
  3. BENZYDAMINE HYDROCHLORIDE [Concomitant]
     Active Substance: BENZYDAMINE HYDROCHLORIDE
     Dates: start: 20171127, end: 20171202
  4. FLUCLOXACILLIN [Concomitant]
     Active Substance: FLUCLOXACILLIN
     Dosage: 20 ML DAILY;
     Dates: start: 20180103, end: 20180110
  5. TACROLIMUS. [Suspect]
     Active Substance: TACROLIMUS
     Route: 065
     Dates: start: 20180111
  6. CLARITHROMYCIN. [Concomitant]
     Active Substance: CLARITHROMYCIN
     Dates: start: 20171201, end: 20171208
  7. HYDROCORTISONE ACETATE. [Concomitant]
     Active Substance: HYDROCORTISONE ACETATE
     Dosage: 2 DOSAGE FORMS DAILY; APPLY.
     Dates: start: 20170829
  8. PIMECROLIMUS [Concomitant]
     Active Substance: PIMECROLIMUS
     Dosage: 3 DOSAGE FORMS DAILY; APPLY FOR ACUTE FLARE UP, THE...
     Dates: start: 20170915
  9. BONJELA [Concomitant]
     Active Substance: CETALKONIUM CHLORIDE\CHOLINE SALICYLATE\MENTHOL
     Dosage: USE AS DIRECTED.
     Dates: start: 20171127, end: 20171128
  10. DIPROBASE [Concomitant]
     Active Substance: CHLOROCRESOL
     Dosage: APPLY.
     Dates: start: 20170605

REACTIONS (1)
  - Rash erythematous [Recovered/Resolved]

NARRATIVE: CASE EVENT DATE: 20180215
